FAERS Safety Report 20011023 (Version 1)
Quarter: 2021Q4

REPORT INFORMATION
  Report Type: Spontaneous
  Country: US (occurrence: US)
  Receive Date: 20211029
  Receipt Date: 20211029
  Transmission Date: 20220303
  Serious: No
  Sender: FDA-Public Use
  Company Number: US-SA-SAC20211025000043

PATIENT
  Age: 14 Year
  Sex: Male

DRUGS (3)
  1. DUPIXENT [Suspect]
     Active Substance: DUPILUMAB
     Indication: Dermatitis atopic
     Dosage: 600 MG, 1X
     Route: 058
     Dates: start: 20211009, end: 20211009
  2. LISINOPRIL [Concomitant]
     Active Substance: LISINOPRIL
  3. MOMETASONE [Concomitant]
     Active Substance: MOMETASONE

REACTIONS (2)
  - Sensory disturbance [Not Recovered/Not Resolved]
  - Skin hypopigmentation [Not Recovered/Not Resolved]

NARRATIVE: CASE EVENT DATE: 20211001
